FAERS Safety Report 12081496 (Version 3)
Quarter: 2016Q3

REPORT INFORMATION
  Report Type: Spontaneous
  Country: US (occurrence: US)
  Receive Date: 20160216
  Receipt Date: 20160718
  Transmission Date: 20161109
  Serious: Yes (Other)
  Sender: FDA-Public Use
  Company Number: US-TEVA-634000USA

PATIENT
  Age: 32 Year
  Sex: Female

DRUGS (1)
  1. ZECUITY [Suspect]
     Active Substance: SUMATRIPTAN SUCCINATE
     Indication: MIGRAINE
     Route: 062
     Dates: start: 20151021, end: 20151021

REACTIONS (11)
  - Application site scar [Not Recovered/Not Resolved]
  - Application site vesicles [Recovered/Resolved]
  - Application site paraesthesia [Unknown]
  - Application site oedema [Unknown]
  - Product leakage [Unknown]
  - Application site pruritus [Unknown]
  - Drug ineffective [Unknown]
  - Chemical injury [Recovered/Resolved]
  - Application site pain [Unknown]
  - Application site burn [Recovered/Resolved]
  - Application site erythema [Unknown]

NARRATIVE: CASE EVENT DATE: 20151021
